FAERS Safety Report 6375816-5 (Version None)
Quarter: 2009Q3

REPORT INFORMATION
  Report Type: 
  Country: None (occurrence: None)
  Receive Date: 20090918
  Receipt Date: 20090908
  Transmission Date: 20100115
  Serious: Yes (Hospitalization)
  Sender: FDA-Public Use
  Company Number: 2009-03703

PATIENT
  Age: 75 Year
  Sex: Male

DRUGS (2)
  1. VELCADE [Suspect]
     Indication: MULTIPLE MYELOMA
     Dosage: INTRAVENOUS
     Route: 042
     Dates: start: 20090820, end: 20090903
  2. LENALIDOMIDE (LENALIDOMIDE) CAPSULE [Suspect]
     Indication: MULTIPLE MYELOMA
     Dosage: ORAL
     Route: 048
     Dates: start: 20090820, end: 20090905

REACTIONS (4)
  - CONFUSIONAL STATE [None]
  - DELUSION [None]
  - INSOMNIA [None]
  - PSYCHOTIC DISORDER [None]
